FAERS Safety Report 8477565-6 (Version None)
Quarter: 2012Q2

REPORT INFORMATION
  Report Type: 
  Country: None (occurrence: None)
  Receive Date: 20120629
  Receipt Date: 20120618
  Transmission Date: 20120825
  Serious: Yes (Hospitalization, Other)
  Sender: FDA-Public Use
  Company Number: IT-CELGENEUS-083-21880-12062586

PATIENT

DRUGS (2)
  1. DEXAMETHASONE [Concomitant]
     Indication: LYMPHOMA
     Route: 065
  2. REVLIMID [Suspect]
     Indication: LYMPHOMA
     Dosage: 25 MILLIGRAM
     Route: 048
     Dates: start: 20090724, end: 20090727

REACTIONS (5)
  - PNEUMONIA [None]
  - INTRACRANIAL HYPOTENSION [None]
  - ENTEROCOLITIS INFECTIOUS [None]
  - CONDUCTION DISORDER [None]
  - CYTOMEGALOVIRUS INFECTION [None]
